FAERS Safety Report 19210659 (Version 1)
Quarter: 2021Q2

REPORT INFORMATION
  Report Type: Spontaneous
  Country: US (occurrence: US)
  Receive Date: 20210504
  Receipt Date: 20210504
  Transmission Date: 20210717
  Serious: No
  Sender: FDA-Public Use
  Company Number: US-ASTRAZENECA-2021A324496

PATIENT
  Sex: Female
  Weight: 54.4 kg

DRUGS (9)
  1. TAROXETINE [Concomitant]
     Indication: BLOOD GLUCOSE ABNORMAL
     Route: 048
  2. BYDUREON BCISE [Suspect]
     Active Substance: EXENATIDE
     Indication: BLOOD GLUCOSE ABNORMAL
     Route: 058
     Dates: start: 20210413
  3. CALTRATE [Concomitant]
     Active Substance: CALCIUM CARBONATE
     Indication: BONE DEFORMITY
     Route: 048
  4. HYDROCHLORIDE [Concomitant]
     Active Substance: UNSPECIFIED INGREDIENT
     Route: 049
  5. VITAMIN D3 [Concomitant]
     Active Substance: CHOLECALCIFEROL
     Indication: BONE DEFORMITY
  6. TAROXETINE [Concomitant]
     Indication: HYPERTENSION
     Route: 048
  7. GLIPIZIDE. [Concomitant]
     Active Substance: GLIPIZIDE
     Route: 048
  8. VALSARTAN. [Concomitant]
     Active Substance: VALSARTAN
     Route: 048
  9. BAYER ASPIRIN LOW DOSE [Concomitant]
     Route: 048

REACTIONS (3)
  - Injection site pain [Unknown]
  - Wrong technique in device usage process [Unknown]
  - Device leakage [Unknown]
